FAERS Safety Report 7670013-5 (Version None)
Quarter: 2011Q3

REPORT INFORMATION
  Report Type: 
  Country: None (occurrence: None)
  Receive Date: 20110808
  Receipt Date: 20110803
  Transmission Date: 20111222
  Serious: Yes (Hospitalization)
  Sender: FDA-Public Use
  Company Number: FR-GENENTECH-319997

PATIENT
  Sex: Female
  Weight: 56 kg

DRUGS (4)
  1. CARBOPLATIN [Suspect]
     Indication: NON-SMALL CELL LUNG CANCER
     Dosage: 504 UNK, Q3W
     Route: 042
     Dates: start: 20110527
  2. BEVACIZUMAB [Suspect]
     Indication: NON-SMALL CELL LUNG CANCER
     Dosage: 855 UNK, Q3W
     Route: 042
     Dates: start: 20110527
  3. PACLITAXEL [Suspect]
     Indication: NON-SMALL CELL LUNG CANCER
     Dosage: 302 UNK, Q3W
     Route: 042
     Dates: start: 20110527
  4. PI3K INHIBITOR [Suspect]
     Indication: NON-SMALL CELL LUNG CANCER
     Dosage: 330 UNK, QD
     Route: 048
     Dates: start: 20110526

REACTIONS (1)
  - RASH [None]
